FAERS Safety Report 10019035 (Version 1)
Quarter: 2014Q1

REPORT INFORMATION
  Report Type: Report from Study
  Country: CA (occurrence: CA)
  Receive Date: 20140318
  Receipt Date: 20140318
  Transmission Date: 20141002
  Serious: Yes (Other)
  Sender: FDA-Public Use
  Company Number: CA-BRISTOL-MYERS SQUIBB COMPANY-20208443

PATIENT
  Age: 64 Year
  Sex: Male

DRUGS (3)
  1. ORENCIA [Suspect]
     Indication: RHEUMATOID ARTHRITIS
     Dosage: 1DF = 750UNIT NOS
     Dates: start: 20120607
  2. PREDNISONE [Concomitant]
  3. TYLENOL [Concomitant]

REACTIONS (1)
  - Gastric ulcer [Recovering/Resolving]
